FAERS Safety Report 11173718 (Version 3)
Quarter: 2015Q3

REPORT INFORMATION
  Report Type: Report from Study
  Country: US (occurrence: US)
  Receive Date: 20150609
  Receipt Date: 20150817
  Transmission Date: 20151125
  Serious: Yes (Hospitalization)
  Sender: FDA-Public Use
  Company Number: PHEH2015US010580

PATIENT
  Sex: Female
  Weight: 111.11 kg

DRUGS (1)
  1. GILENYA [Suspect]
     Active Substance: FINGOLIMOD HYDROCHLORIDE
     Indication: MULTIPLE SCLEROSIS
     Dosage: 0.5 MG, QD
     Route: 048
     Dates: start: 20120809

REACTIONS (5)
  - Chest pain [Recovering/Resolving]
  - Post procedural complication [Recovering/Resolving]
  - Aneurysm [Recovering/Resolving]
  - Splenic artery aneurysm [Recovered/Resolved]
  - Platelet count increased [Unknown]
